FAERS Safety Report 8895323 (Version 2)
Quarter: 2012Q4

REPORT INFORMATION
  Report Type: 
  Country: US (occurrence: US)
  Receive Date: 20121108
  Receipt Date: 20121212
  Transmission Date: 20130627
  Serious: Yes (Other)
  Sender: FDA-Public Use
  Company Number: US-PFIZER INC-2012279054

PATIENT
  Age: 37 Year
  Sex: Female
  Weight: 54.42 kg

DRUGS (2)
  1. LYRICA [Suspect]
     Indication: NEURITIS CRANIAL
     Dosage: 100 mg, 3x/day
  2. HYDROCODONE/IBUPROFEN [Concomitant]
     Indication: PAIN
     Dosage: 7.5/200 mg, as needed

REACTIONS (2)
  - Intervertebral disc protrusion [Recovering/Resolving]
  - Carpal tunnel syndrome [Recovering/Resolving]
